FAERS Safety Report 14765026 (Version 1)
Quarter: 2018Q2

REPORT INFORMATION
  Report Type: Spontaneous
  Country: US (occurrence: US)
  Receive Date: 20180416
  Receipt Date: 20180416
  Transmission Date: 20180711
  Serious: No
  Sender: FDA-Public Use
  Company Number: US-GLAXOSMITHKLINE-US2018059511

PATIENT

DRUGS (1)
  1. ABREVA [Suspect]
     Active Substance: DOCOSANOL
     Indication: RASH
     Dosage: UNK

REACTIONS (4)
  - Product use in unapproved indication [Unknown]
  - Product use issue [Unknown]
  - Intentional product misuse [Unknown]
  - Drug effective for unapproved indication [Unknown]
